FAERS Safety Report 15179844 (Version 3)
Quarter: 2021Q1

REPORT INFORMATION
  Report Type: Spontaneous
  Country: GB (occurrence: GB)
  Receive Date: 20180723
  Receipt Date: 20210301
  Transmission Date: 20210419
  Serious: Yes (Life-Threatening, Hospitalization, Disabling)
  Sender: FDA-Public Use
  Company Number: PHHY2017GB001006

PATIENT
  Age: 42 Year
  Sex: Female
  Weight: 98 kg

DRUGS (76)
  1. NOREPINEPHRINE. [Concomitant]
     Active Substance: NOREPINEPHRINE
     Indication: PRODUCT USED FOR UNKNOWN INDICATION
     Dosage: UNK
     Route: 065
  2. ASPIRIN. [Concomitant]
     Active Substance: ASPIRIN
     Indication: PRODUCT USED FOR UNKNOWN INDICATION
     Route: 065
  3. FILGRASTIM [Concomitant]
     Active Substance: FILGRASTIM
     Indication: PRODUCT USED FOR UNKNOWN INDICATION
     Route: 065
  4. METARAMINOL [Concomitant]
     Active Substance: METARAMINOL
     Indication: PRODUCT USED FOR UNKNOWN INDICATION
     Route: 065
  5. NORADRENALINE [Concomitant]
     Active Substance: NOREPINEPHRINE
     Indication: PRODUCT USED FOR UNKNOWN INDICATION
     Route: 065
  6. TEICOPLANIN [Concomitant]
     Active Substance: TEICOPLANIN
     Indication: PRODUCT USED FOR UNKNOWN INDICATION
     Route: 065
  7. MAGNASPARTATE [Concomitant]
     Indication: BLOOD MAGNESIUM DECREASED
     Dosage: 10 MMOL, UNK
     Route: 065
     Dates: start: 20160908
  8. CYCLIZINE [Concomitant]
     Active Substance: CYCLIZINE
     Indication: NAUSEA
     Dosage: AS NEEDED
     Route: 048
     Dates: start: 20160908
  9. GTN [Concomitant]
     Active Substance: NITROGLYCERIN
     Indication: PRODUCT USED FOR UNKNOWN INDICATION
     Dosage: UNK
     Route: 065
  10. ZOPICLONE [Concomitant]
     Active Substance: ZOPICLONE
     Indication: PRODUCT USED FOR UNKNOWN INDICATION
     Dosage: UNK
     Route: 065
  11. CALCIUM GLUCONATE. [Concomitant]
     Active Substance: CALCIUM GLUCONATE
     Indication: PRODUCT USED FOR UNKNOWN INDICATION
     Route: 065
  12. DIAZEPAM. [Concomitant]
     Active Substance: DIAZEPAM
     Indication: PRODUCT USED FOR UNKNOWN INDICATION
     Route: 065
  13. ERDOSTEINE [Concomitant]
     Active Substance: ERDOSTEINE
     Indication: PRODUCT USED FOR UNKNOWN INDICATION
     Route: 065
  14. LANSOPRAZOLE. [Concomitant]
     Active Substance: LANSOPRAZOLE
     Indication: PRODUCT USED FOR UNKNOWN INDICATION
     Route: 065
  15. POTASSIUM BICARBONATE. [Concomitant]
     Active Substance: POTASSIUM BICARBONATE
     Indication: PRODUCT USED FOR UNKNOWN INDICATION
     Route: 065
  16. PERTUZUMAB. [Suspect]
     Active Substance: PERTUZUMAB
     Indication: BREAST CANCER METASTATIC
     Dosage: 840 MG LOADING DOSE
     Route: 042
     Dates: start: 20160718, end: 20160808
  17. PERTUZUMAB. [Suspect]
     Active Substance: PERTUZUMAB
     Dosage: 840MG FIRST DOSE THEN 420MG
     Route: 042
     Dates: start: 20160808, end: 20160830
  18. PARACETAMOL [Concomitant]
     Active Substance: ACETAMINOPHEN
     Indication: PAIN
     Dosage: 1 G, UNK
     Route: 048
     Dates: start: 20160908
  19. TAUROLOCK [Concomitant]
     Active Substance: TAUROLIDINE
     Indication: PRODUCT USED FOR UNKNOWN INDICATION
     Dosage: UNK
     Route: 065
  20. MAGNESIUM ASPARTATE [Concomitant]
     Active Substance: MAGNESIUM ASPARTATE
     Indication: PRODUCT USED FOR UNKNOWN INDICATION
     Dosage: UNK
     Route: 065
  21. BISOPROLOL [Concomitant]
     Active Substance: BISOPROLOL
     Indication: PRODUCT USED FOR UNKNOWN INDICATION
     Route: 065
  22. BUSCOPAN [Concomitant]
     Active Substance: BUTYLSCOPOLAMINE BROMIDE
     Indication: PRODUCT USED FOR UNKNOWN INDICATION
     Route: 065
  23. DALTEPARIN [Concomitant]
     Active Substance: DALTEPARIN
     Indication: PRODUCT USED FOR UNKNOWN INDICATION
     Route: 065
  24. RAMIPRIL. [Concomitant]
     Active Substance: RAMIPRIL
     Indication: PRODUCT USED FOR UNKNOWN INDICATION
     Route: 065
  25. SODIUM CITRATE. [Concomitant]
     Active Substance: SODIUM CITRATE
     Indication: PRODUCT USED FOR UNKNOWN INDICATION
     Route: 065
  26. DOCETAXEL. [Suspect]
     Active Substance: DOCETAXEL
     Dosage: 160 MG, QMO (TOTAL LOADING DOSE)
     Route: 042
     Dates: start: 20160718
  27. ONDANSETRON [Concomitant]
     Active Substance: ONDANSETRON
     Indication: NAUSEA
     Dosage: 4 MG, UNK
     Route: 048
     Dates: start: 20160908
  28. LEVOMEPROMAZINE [Concomitant]
     Active Substance: LEVOMEPROMAZINE
     Indication: PRODUCT USED FOR UNKNOWN INDICATION
     Dosage: UNK
     Route: 065
  29. GLUCOGEL [Concomitant]
     Indication: PRODUCT USED FOR UNKNOWN INDICATION
     Dosage: UNK
     Route: 042
  30. ARGATROBAN. [Concomitant]
     Active Substance: ARGATROBAN
     Indication: PRODUCT USED FOR UNKNOWN INDICATION
     Route: 065
  31. MORPHINE [Concomitant]
     Active Substance: MORPHINE
     Indication: PRODUCT USED FOR UNKNOWN INDICATION
     Dosage: UNK
     Route: 065
  32. ERDOTIN [Concomitant]
     Active Substance: ERDOSTEINE
     Indication: PRODUCT USED FOR UNKNOWN INDICATION
     Route: 065
  33. FRAGMIN [Concomitant]
     Active Substance: DALTEPARIN SODIUM
     Indication: PRODUCT USED FOR UNKNOWN INDICATION
     Route: 065
  34. FRUSEMIDE [Concomitant]
     Active Substance: FUROSEMIDE
     Indication: ACUTE KIDNEY INJURY
     Route: 065
  35. MORPHINE SULPHATE [Concomitant]
     Active Substance: MORPHINE SULFATE
     Indication: PRODUCT USED FOR UNKNOWN INDICATION
     Route: 065
  36. METOCLOPRAMIDE. [Concomitant]
     Active Substance: METOCLOPRAMIDE
     Indication: PRODUCT USED FOR UNKNOWN INDICATION
     Route: 065
  37. SANDOCAL [Concomitant]
     Indication: PRODUCT USED FOR UNKNOWN INDICATION
     Route: 065
  38. DOCETAXEL. [Suspect]
     Active Substance: DOCETAXEL
     Dosage: 160 MG, QMO
     Route: 042
     Dates: start: 20160808, end: 20160808
  39. CITALOPRAM [Concomitant]
     Active Substance: CITALOPRAM HYDROBROMIDE
     Indication: DEPRESSION
     Dosage: 20 MG, QD
     Route: 048
     Dates: start: 20160921
  40. CODEINE [Concomitant]
     Active Substance: CODEINE
     Indication: PRODUCT USED FOR UNKNOWN INDICATION
     Dosage: UNK
     Route: 065
  41. SODIUM LACTATE. [Concomitant]
     Active Substance: SODIUM LACTATE
     Indication: PRODUCT USED FOR UNKNOWN INDICATION
     Route: 065
  42. PROPOFOL. [Concomitant]
     Active Substance: PROPOFOL
     Indication: PRODUCT USED FOR UNKNOWN INDICATION
     Route: 065
  43. TAUROLIDINE [Concomitant]
     Active Substance: TAUROLIDINE
     Indication: PRODUCT USED FOR UNKNOWN INDICATION
     Route: 065
  44. LETROZOLE. [Suspect]
     Active Substance: LETROZOLE
     Indication: HER2 POSITIVE BREAST CANCER
     Dosage: 2.5 MG, QD
     Route: 048
     Dates: start: 20170124
  45. HERCEPTIN [Suspect]
     Active Substance: TRASTUZUMAB
     Indication: BREAST CANCER METASTATIC
     Dosage: 798MG LOADING
     Route: 042
     Dates: start: 20160718
  46. HERCEPTIN [Suspect]
     Active Substance: TRASTUZUMAB
     Dosage: 588 MG, QMO
     Route: 042
     Dates: start: 20160808, end: 20160808
  47. HERCEPTIN [Suspect]
     Active Substance: TRASTUZUMAB
     Dosage: 609 MG, QMO
     Route: 042
     Dates: start: 20160830, end: 20160830
  48. POTASSIUM CHLORIDE. [Concomitant]
     Active Substance: POTASSIUM CHLORIDE
     Indication: PRODUCT USED FOR UNKNOWN INDICATION
     Dosage: UNK
     Route: 065
  49. MEROPENEM. [Concomitant]
     Active Substance: MEROPENEM
     Indication: PRODUCT USED FOR UNKNOWN INDICATION
     Dosage: UNK
     Route: 065
  50. DANAPAROID [Concomitant]
     Active Substance: DANAPAROID
     Indication: PRODUCT USED FOR UNKNOWN INDICATION
     Dosage: UNK
     Route: 065
  51. CIPROFLOXACINE [Concomitant]
     Active Substance: CIPROFLOXACIN
     Indication: DEPRESSION
     Dosage: 20 MG, QD
     Route: 048
     Dates: start: 20160921
  52. ERYTHROMYCIN. [Concomitant]
     Active Substance: ERYTHROMYCIN
     Indication: PRODUCT USED FOR UNKNOWN INDICATION
     Route: 065
  53. ORAMORPH [Concomitant]
     Active Substance: MORPHINE SULFATE
     Indication: PRODUCT USED FOR UNKNOWN INDICATION
     Route: 065
  54. TAZOCIN [Concomitant]
     Active Substance: PIPERACILLIN SODIUM\TAZOBACTAM SODIUM
     Indication: PRODUCT USED FOR UNKNOWN INDICATION
     Route: 065
  55. VASOPRESSIN. [Concomitant]
     Active Substance: VASOPRESSIN
     Indication: PRODUCT USED FOR UNKNOWN INDICATION
     Route: 065
  56. DOCETAXEL. [Suspect]
     Active Substance: DOCETAXEL
     Indication: BREAST CANCER METASTATIC
     Dosage: 160 MG, QMO
     Route: 042
     Dates: start: 20160708
  57. DOCETAXEL. [Suspect]
     Active Substance: DOCETAXEL
     Dosage: 164 MG, QMO
     Route: 042
     Dates: start: 20160830, end: 20160830
  58. TINZAPARIN [Concomitant]
     Active Substance: TINZAPARIN
     Indication: PRODUCT USED FOR UNKNOWN INDICATION
     Dosage: UNK
     Route: 065
  59. FLUCLOXACILLIN [Concomitant]
     Active Substance: FLUCLOXACILLIN
     Indication: PRODUCT USED FOR UNKNOWN INDICATION
     Dosage: UNK
     Route: 065
  60. MAGNESIUM SULFATE. [Concomitant]
     Active Substance: MAGNESIUM SULFATE
     Indication: PRODUCT USED FOR UNKNOWN INDICATION
     Dosage: UNK
     Route: 065
  61. OXYNORM [Concomitant]
     Active Substance: OXYCODONE HYDROCHLORIDE
     Indication: PAIN
     Dosage: UNK
     Route: 065
  62. DEXTROSE. [Concomitant]
     Active Substance: DEXTROSE
     Indication: PRODUCT USED FOR UNKNOWN INDICATION
     Route: 065
  63. FONDAPARINUX [Concomitant]
     Active Substance: FONDAPARINUX
     Indication: PRODUCT USED FOR UNKNOWN INDICATION
     Route: 065
  64. HEPARIN [Concomitant]
     Active Substance: HEPARIN SODIUM
     Indication: PRODUCT USED FOR UNKNOWN INDICATION
     Route: 065
  65. DIHYDROCODEINE [Concomitant]
     Active Substance: DIHYDROCODEINE
     Indication: PAIN
     Dosage: 30 MG, UNK
     Route: 048
     Dates: start: 20160908
  66. TRANEXAMIC ACID. [Concomitant]
     Active Substance: TRANEXAMIC ACID
     Indication: PRODUCT USED FOR UNKNOWN INDICATION
     Dosage: UNK
     Route: 065
  67. ALFENTANIL. [Concomitant]
     Active Substance: ALFENTANIL
     Indication: PRODUCT USED FOR UNKNOWN INDICATION
     Route: 065
  68. ALTEPLASE. [Concomitant]
     Active Substance: ALTEPLASE
     Indication: PRODUCT USED FOR UNKNOWN INDICATION
     Route: 065
  69. EPOPROSTENOL. [Concomitant]
     Active Substance: EPOPROSTENOL
     Indication: PRODUCT USED FOR UNKNOWN INDICATION
     Route: 065
  70. FLUCONAZOLE. [Concomitant]
     Active Substance: FLUCONAZOLE
     Indication: PRODUCT USED FOR UNKNOWN INDICATION
     Route: 065
  71. GENTAMICIN. [Concomitant]
     Active Substance: GENTAMICIN
     Indication: PRODUCT USED FOR UNKNOWN INDICATION
     Route: 065
  72. CALCIUM CHLORIDE. [Concomitant]
     Active Substance: CALCIUM CHLORIDE
     Indication: PRODUCT USED FOR UNKNOWN INDICATION
     Route: 065
  73. MIDAZOLAM. [Concomitant]
     Active Substance: MIDAZOLAM
     Indication: PRODUCT USED FOR UNKNOWN INDICATION
     Route: 065
  74. NASEPTIN [Concomitant]
     Active Substance: CHLORHEXIDINE HYDROCHLORIDE\NEOMYCIN SULFATE
     Indication: PRODUCT USED FOR UNKNOWN INDICATION
     Route: 065
  75. OMEPRAZOLE. [Concomitant]
     Active Substance: OMEPRAZOLE
     Indication: PRODUCT USED FOR UNKNOWN INDICATION
     Route: 065
  76. METRONIDAZOLE. [Concomitant]
     Active Substance: METRONIDAZOLE
     Indication: PRODUCT USED FOR UNKNOWN INDICATION
     Route: 065

REACTIONS (11)
  - Diarrhoea [Recovering/Resolving]
  - Abdominal pain [Recovered/Resolved with Sequelae]
  - Neutropenic sepsis [Recovered/Resolved]
  - Colitis [Recovering/Resolving]
  - Vomiting [Recovered/Resolved with Sequelae]
  - Peritonitis [Recovering/Resolving]
  - Colitis ischaemic [Recovered/Resolved]
  - Perforation [Recovering/Resolving]
  - Pneumonia [Recovered/Resolved]
  - Rash [Recovered/Resolved]
  - Acute kidney injury [Recovered/Resolved]

NARRATIVE: CASE EVENT DATE: 20160803
